FAERS Safety Report 25229917 (Version 1)
Quarter: 2025Q2

REPORT INFORMATION
  Report Type: Spontaneous
  Country: US (occurrence: US)
  Receive Date: 20250423
  Receipt Date: 20250423
  Transmission Date: 20250717
  Serious: Yes (Other)
  Sender: MYLAN
  Company Number: US-MYLANLABS-2025M1034454

PATIENT
  Age: 51 Year
  Sex: Male

DRUGS (2)
  1. ATORVASTATIN CALCIUM [Interacting]
     Active Substance: ATORVASTATIN CALCIUM
     Indication: Hyperlipidaemia
  2. CIPROFLOXACIN [Interacting]
     Active Substance: CIPROFLOXACIN
     Indication: Antibiotic therapy

REACTIONS (2)
  - Drug interaction [Recovering/Resolving]
  - Rhabdomyolysis [Recovering/Resolving]
